FAERS Safety Report 8602903-0 (Version None)
Quarter: 2012Q3

REPORT INFORMATION
  Report Type: 
  Country: None (occurrence: None)
  Receive Date: 20120817
  Receipt Date: 20120808
  Transmission Date: 20120928
  Serious: Yes (Hospitalization)
  Sender: FDA-Public Use
  Company Number: DE-GLAXOSMITHKLINE-B0814823B

PATIENT
  Sex: Female
  Weight: 73 kg

DRUGS (6)
  1. RAMIPRIL [Concomitant]
     Dosage: 10MG PER DAY
  2. PACLITAXEL [Suspect]
     Indication: BREAST CANCER
     Dosage: 153MG WEEKLY
     Route: 042
     Dates: start: 20120319
  3. HERCEPTIN [Suspect]
     Indication: BREAST CANCER
     Dosage: 438MG EVERY 3 WEEKS
     Route: 042
     Dates: start: 20120319
  4. LEVOTHYROXINE SODIUM [Concomitant]
     Dosage: 75MG PER DAY
  5. DOXORUBICIN HCL [Suspect]
     Indication: BREAST CANCER
     Dosage: 38MG WEEKLY
     Route: 042
     Dates: start: 20120319
  6. LAPATINIB [Suspect]
     Indication: BREAST CANCER
     Dosage: 750MG PER DAY
     Route: 048
     Dates: start: 20120319

REACTIONS (2)
  - RESPIRATORY DISORDER [None]
  - ANTIBIOTIC RESISTANT STAPHYLOCOCCUS TEST POSITIVE [None]
